FAERS Safety Report 8154748-6 (Version None)
Quarter: 2012Q1

REPORT INFORMATION
  Report Type: 
  Country: None (occurrence: None)
  Receive Date: 20120221
  Receipt Date: 20120207
  Transmission Date: 20120608
  Serious: Yes (Hospitalization, Other)
  Sender: FDA-Public Use
  Company Number: PHHY2011JP108173

PATIENT
  Age: 89 Year
  Sex: Male

DRUGS (11)
  1. OMEPRAZOLE [Concomitant]
  2. ATELEC [Concomitant]
  3. HALOPERIDOL [Concomitant]
  4. CAMOSTAT [Concomitant]
  5. RIVASTIGMINE [Suspect]
     Dosage: 9 MG, DAILY
     Route: 062
     Dates: start: 20111115, end: 20111120
  6. ALLOPURINOL [Concomitant]
  7. KALIMATE [Concomitant]
  8. BERIZYM [Concomitant]
  9. RIVASTIGMINE [Suspect]
     Indication: DEMENTIA ALZHEIMER'S TYPE
     Dosage: 4.5 MG, DAILY
     Route: 062
     Dates: start: 20111001, end: 20111114
  10. NOVOLIN R [Concomitant]
  11. FERROUS CITRATE [Concomitant]

REACTIONS (6)
  - SOMNOLENCE [None]
  - TACITURNITY [None]
  - GAIT DISTURBANCE [None]
  - CONVULSION [None]
  - HYPONATRAEMIA [None]
  - HYPOPHAGIA [None]
